FAERS Safety Report 24408588 (Version 1)
Quarter: 2024Q4

REPORT INFORMATION
  Report Type: Spontaneous
  Country: IN (occurrence: IN)
  Receive Date: 20241007
  Receipt Date: 20241007
  Transmission Date: 20250115
  Serious: Yes (Other)
  Sender: NOVARTIS
  Company Number: IN-SANDOZ-SDZ2024IN084075

PATIENT
  Age: 44 Year
  Sex: Male

DRUGS (2)
  1. TACROLIMUS [Suspect]
     Active Substance: TACROLIMUS
     Indication: Renal transplant
     Dosage: 4 MG, QD (2 MG, BID)
     Route: 048
  2. MYFORTIC [Suspect]
     Active Substance: MYCOPHENOLATE SODIUM
     Indication: Renal transplant
     Dosage: 720 MG, QD (360 MG, BID)
     Route: 048

REACTIONS (9)
  - Hydronephrosis [Unknown]
  - Spermatic cord funiculitis [Unknown]
  - Hydrocele male infected [Unknown]
  - Varicocele [Unknown]
  - Joint swelling [Unknown]
  - Oedema peripheral [Unknown]
  - Hypertension [Unknown]
  - Orchitis [Unknown]
  - Cytomegalovirus test positive [Unknown]
